FAERS Safety Report 5398130-3 (Version None)
Quarter: 2007Q3

REPORT INFORMATION
  Report Type: 
  Country: None (occurrence: None)
  Receive Date: 20070726
  Receipt Date: 20070717
  Transmission Date: 20080115
  Serious: Yes (Other)
  Sender: FDA-Public Use
  Company Number: US-AMGEN-STX234479

PATIENT

DRUGS (1)
  1. ENBREL [Suspect]
     Indication: PSORIATIC ARTHROPATHY
     Route: 065

REACTIONS (1)
  - CARCINOID TUMOUR [None]
